FAERS Safety Report 8863225 (Version 1)
Quarter: 2012Q4

REPORT INFORMATION
  Report Type: Report from Study
  Country: US (occurrence: US)
  Receive Date: 20121025
  Receipt Date: 20121025
  Transmission Date: 20130627
  Serious: No
  Sender: FDA-Public Use
  Company Number: US-ABBOTT-12P-163-0939603-00

PATIENT
  Sex: Female
  Weight: 64.47 kg

DRUGS (4)
  1. LUPRON DEPOT 3.75 MG [Suspect]
     Indication: ENDOMETRIOSIS
     Dates: start: 20120406, end: 20120507
  2. ESTROTEST [Concomitant]
     Indication: PRODUCT USED FOR UNKNOWN INDICATION
     Dates: start: 2002
  3. TOPOMAX [Concomitant]
     Indication: MIGRAINE
  4. CELEXA [Concomitant]
     Indication: DEPRESSION

REACTIONS (2)
  - Abdominal pain [Not Recovered/Not Resolved]
  - Hot flush [Recovered/Resolved]
